FAERS Safety Report 21802693 (Version 1)
Quarter: 2022Q4

REPORT INFORMATION
  Report Type: Report from Study
  Country: AR (occurrence: AR)
  Receive Date: 20221231
  Receipt Date: 20221231
  Transmission Date: 20230113
  Serious: Yes (Hospitalization, Other)
  Sender: FDA-Public Use
  Company Number: AR-002147023-NVSC2020AR347931

PATIENT
  Age: 59 Year
  Sex: Male

DRUGS (3)
  1. RYDAPT [Suspect]
     Active Substance: MIDOSTAURIN
     Indication: Systemic mastocytosis
     Dosage: 200 MG, BID
     Route: 048
     Dates: start: 20181228
  2. RYDAPT [Suspect]
     Active Substance: MIDOSTAURIN
     Dosage: 2 DOSAGE FORM, QD
     Route: 048
     Dates: start: 20181228
  3. RYDAPT [Suspect]
     Active Substance: MIDOSTAURIN
     Dosage: 200 MG, QD
     Route: 048
     Dates: start: 20181228

REACTIONS (9)
  - Gangrene [Unknown]
  - Diabetes mellitus [Unknown]
  - Swelling [Unknown]
  - Colitis [Unknown]
  - Pain in extremity [Unknown]
  - Malaise [Unknown]
  - Incorrect dose administered [Unknown]
  - Wrong technique in product usage process [Unknown]
  - Intentional product use issue [Unknown]

NARRATIVE: CASE EVENT DATE: 20200101
